FAERS Safety Report 9408480 (Version 1)
Quarter: 2013Q3

REPORT INFORMATION
  Report Type: Spontaneous
  Country: US (occurrence: US)
  Receive Date: 20130718
  Receipt Date: 20130718
  Transmission Date: 20140515
  Serious: No
  Sender: FDA-Public Use
  Company Number: US-009507513-1307USA008432

PATIENT
  Age: 35 Year
  Sex: Male

DRUGS (1)
  1. SAPHRIS [Suspect]
     Dosage: UNK
     Route: 048
     Dates: start: 20100916

REACTIONS (5)
  - Product taste abnormal [Unknown]
  - Feelings of worthlessness [Unknown]
  - Fatigue [Unknown]
  - Pain [Unknown]
  - Insomnia [Unknown]
